FAERS Safety Report 14564962 (Version 2)
Quarter: 2018Q1

REPORT INFORMATION
  Report Type: Spontaneous
  Country: CO (occurrence: CO)
  Receive Date: 20180223
  Receipt Date: 20180329
  Transmission Date: 20180509
  Serious: No
  Sender: FDA-Public Use
  Company Number: CO-AMGEN-COLSP2018024598

PATIENT
  Age: 54 Year
  Sex: Male

DRUGS (2)
  1. ENBREL [Suspect]
     Active Substance: ETANERCEPT
     Indication: PSORIASIS
     Dosage: 50 MG, WEEKLY
     Route: 058
     Dates: start: 20170812
  2. LOSARTAN. [Concomitant]
     Active Substance: LOSARTAN
     Dosage: UNK
     Dates: start: 2013

REACTIONS (1)
  - No adverse event [Unknown]
